FAERS Safety Report 5482193-0 (Version None)
Quarter: 2007Q4

REPORT INFORMATION
  Report Type: 
  Country: None (occurrence: None)
  Receive Date: 20071005
  Receipt Date: 20070920
  Transmission Date: 20080405
  Serious: Yes (Hospitalization, Disabling)
  Sender: FDA-Public Use
  Company Number: 2007001751

PATIENT
  Age: 65 Year
  Sex: Female

DRUGS (1)
  1. TARCEVA [Suspect]
     Indication: PANCREATIC CARCINOMA
     Dosage: (150 MG, QD), ORAL
     Route: 048
     Dates: start: 20070830, end: 20070911

REACTIONS (5)
  - DEAFNESS NEUROSENSORY [None]
  - DEAFNESS UNILATERAL [None]
  - HEARING IMPAIRED [None]
  - OTOTOXICITY [None]
  - VERTIGO [None]
